FAERS Safety Report 9162806 (Version 1)
Quarter: 2013Q1

REPORT INFORMATION
  Report Type: Spontaneous
  Country: US (occurrence: None)
  Receive Date: 20130222
  Receipt Date: 20130222
  Transmission Date: 20140127
  Serious: Yes (Other)
  Sender: FDA-Public Use
  Company Number: SYM-2013-00495

PATIENT
  Age: 60 Year
  Sex: Male

DRUGS (4)
  1. WELLBUTRIN [Suspect]
     Indication: DEPRESSION
     Dosage: NOT REPORTED, DISCONTINUED
  2. ZOLOFT [Suspect]
     Indication: PRODUCT USED FOR UNKNOWN INDICATION
  3. CONCERTA [Suspect]
     Indication: PRODUCT USED FOR UNKNOWN INDICATION
  4. KLONOPIN [Suspect]
     Indication: PRODUCT USED FOR UNKNOWN INDICATION

REACTIONS (4)
  - Pituitary tumour [None]
  - Peyronie^s disease [None]
  - Erectile dysfunction [None]
  - Loss of libido [None]
